FAERS Safety Report 19611497 (Version 2)
Quarter: 2021Q3

REPORT INFORMATION
  Report Type: Report from Study
  Country: CN (occurrence: CN)
  Receive Date: 20210726
  Receipt Date: 20210804
  Transmission Date: 20211014
  Serious: Yes (Hospitalization, Other)
  Sender: FDA-Public Use
  Company Number: CN-JNJFOC-20210738747

PATIENT
  Age: 57 Year
  Sex: Male
  Weight: 55.5 kg

DRUGS (4)
  1. LAZERTINIB. [Suspect]
     Active Substance: LAZERTINIB
     Dosage: RESUMED ORAL ADMINISTRATION
     Route: 048
     Dates: start: 20210727
  2. AMIVANTAMAB. [Suspect]
     Active Substance: AMIVANTAMAB
     Indication: NON-SMALL CELL LUNG CANCER
     Dosage: MOST RECENT DOSE ON 16?JUL?2021
     Route: 042
     Dates: start: 20210409
  3. LAZERTINIB. [Suspect]
     Active Substance: LAZERTINIB
     Indication: NON-SMALL CELL LUNG CANCER
     Dosage: MOST RECENT DOSE ON 16?JUL?2021
     Route: 048
     Dates: start: 20210409
  4. AMIVANTAMAB. [Suspect]
     Active Substance: AMIVANTAMAB
     Dosage: C5D1 RESUMED DRUG THERAPY
     Route: 042
     Dates: start: 20210730

REACTIONS (1)
  - Metastases to meninges [Not Recovered/Not Resolved]

NARRATIVE: CASE EVENT DATE: 20210716
